FAERS Safety Report 8830017 (Version 1)
Quarter: 2012Q4

REPORT INFORMATION
  Report Type: 
  Country: US (occurrence: US)
  Receive Date: 20121008
  Receipt Date: 20121008
  Transmission Date: 20130627
  Serious: Yes (Death)
  Sender: FDA-Public Use
  Company Number: US-ROCHE-1130646

PATIENT
  Sex: Male

DRUGS (6)
  1. RITUXAN [Suspect]
     Indication: HODGKIN^S DISEASE
     Route: 065
  2. ASA [Concomitant]
  3. VINBLASTINE [Concomitant]
     Route: 065
  4. DEXAMETASON [Concomitant]
     Route: 065
  5. CHLORAMBUCIL [Concomitant]
     Dosage: 10 mg/l
     Route: 065
  6. VINCRISTIN [Concomitant]

REACTIONS (3)
  - Death [Fatal]
  - Immunosuppression [Unknown]
  - Infection [Unknown]
